FAERS Safety Report 23801670 (Version 1)
Quarter: 2024Q2

REPORT INFORMATION
  Report Type: Report from Study
  Country: CA (occurrence: CA)
  Receive Date: 20240501
  Receipt Date: 20240501
  Transmission Date: 20240716
  Serious: Yes (Other)
  Sender: FDA-Public Use
  Company Number: CA-ABBVIE-5738627

PATIENT
  Age: 59 Year
  Sex: Male

DRUGS (3)
  1. HUMIRA [Suspect]
     Active Substance: ADALIMUMAB
     Indication: Crohn^s disease
     Dosage: FORM STRENGTH 40 MILLIGRAM
     Route: 058
  2. HUMIRA [Suspect]
     Active Substance: ADALIMUMAB
     Dosage: FORM STRENGTH 40 MILLIGRAM
     Route: 058
     Dates: start: 20161207
  3. METHOTREXATE [Concomitant]
     Active Substance: METHOTREXATE
     Indication: Product used for unknown indication

REACTIONS (11)
  - Abdominal distension [Unknown]
  - Enterocolitis [Unknown]
  - Abdominal mass [Unknown]
  - Nausea [Unknown]
  - Gastrointestinal sounds abnormal [Unknown]
  - Gastrointestinal disorder [Unknown]
  - Unevaluable event [Unknown]
  - Crohn^s disease [Unknown]
  - Drug ineffective [Unknown]
  - Dyspepsia [Unknown]
  - Inflammation [Unknown]

NARRATIVE: CASE EVENT DATE: 20240101
